FAERS Safety Report 4362969-3 (Version None)
Quarter: 2004Q2

REPORT INFORMATION
  Report Type: 
  Country: None (occurrence: None)
  Receive Date: 20040517
  Receipt Date: 20040405
  Transmission Date: 20050107
  Serious: No
  Sender: FDA-Public Use
  Company Number: S04-USA-01918-01

PATIENT
  Age: 75 Year
  Sex: Female

DRUGS (10)
  1. NAMENDA [Suspect]
     Indication: DEMENTIA ALZHEIMER'S TYPE
     Dosage: 10 MG QD PO
     Route: 048
     Dates: start: 20040329, end: 20040401
  2. NAMENDA [Suspect]
     Indication: DEMENTIA ALZHEIMER'S TYPE
     Dosage: 5 MG QD PO
     Route: 048
     Dates: start: 20040402
  3. NAMENDA [Suspect]
     Indication: DEMENTIA ALZHEIMER'S TYPE
     Dosage: 5 MG QD PO
     Route: 048
     Dates: start: 20040322, end: 20040328
  4. ASPIRIN [Concomitant]
  5. PROPOXYPHENE NAPSYLATE [Concomitant]
  6. PRILOSEC [Concomitant]
  7. NEURONTIN [Concomitant]
  8. INSULIN [Concomitant]
  9. GLAUCOMA EYE DROPS [Concomitant]
  10. MULTI-VITAMIN [Concomitant]

REACTIONS (2)
  - ARTHRALGIA [None]
  - INSOMNIA [None]
